FAERS Safety Report 9108257 (Version 2)
Quarter: 2013Q1

REPORT INFORMATION
  Report Type: Spontaneous
  Country: US (occurrence: US)
  Receive Date: 20130222
  Receipt Date: 20130326
  Transmission Date: 20140127
  Serious: Yes (Other)
  Sender: FDA-Public Use
  Company Number: US-AMGEN-USASP2012063378

PATIENT
  Age: 31 Year
  Sex: Female
  Weight: 57.14 kg

DRUGS (1)
  1. ENBREL [Suspect]
     Indication: RHEUMATOID ARTHRITIS
     Dosage: 50 MG, BIMONTHLY
     Route: 058
     Dates: start: 2003

REACTIONS (2)
  - Abortion spontaneous [Recovered/Resolved]
  - Swelling [Unknown]
